FAERS Safety Report 7161445-2 (Version None)
Quarter: 2010Q4

REPORT INFORMATION
  Report Type: 
  Country: None (occurrence: None)
  Receive Date: 20101201
  Receipt Date: 20101116
  Transmission Date: 20110411
  Serious: Yes (Hospitalization)
  Sender: FDA-Public Use
  Company Number: 2010AP002436

PATIENT
  Age: 77 Year
  Sex: Female

DRUGS (6)
  1. ALENDRONATE SODIUM [Suspect]
     Dosage: 70 MG;PO;QW
     Route: 048
  2. ASPIRIN [Concomitant]
  3. BENDROFLUMETHIAZIDE (BENDROFLUMETHIAZIDE) [Concomitant]
  4. DILTIAZEM [Concomitant]
  5. SIMVASTATIN [Concomitant]
  6. SOTALOL HYDROCHLORIDE [Concomitant]

REACTIONS (2)
  - FALL [None]
  - FEMUR FRACTURE [None]
